FAERS Safety Report 8517939-8 (Version None)
Quarter: 2012Q3

REPORT INFORMATION
  Report Type: 
  Country: None (occurrence: None)
  Receive Date: 20120718
  Receipt Date: 20110726
  Transmission Date: 20120928
  Serious: No
  Sender: FDA-Public Use
  Company Number: US-BRISTOL-MYERS SQUIBB COMPANY-15925175

PATIENT
  Age: 66 Year
  Sex: Female

DRUGS (10)
  1. POTASSIUM CHLORIDE [Concomitant]
  2. METFORMIN HYDROCHLORIDE [Concomitant]
  3. HYDROCODONE BITARTRATE + ACETAMINOPHEN [Concomitant]
     Indication: PAIN
     Dosage: TABS
  4. LASIX [Concomitant]
     Dosage: 1DF:60MG TO 80MG
  5. ISOSORBIDE [Concomitant]
  6. COUMADIN [Suspect]
     Indication: ATRIAL FIBRILLATION
     Dosage: 1DF:5MG/D AND EVERY WEDNESDAY A PILL AND A HALF
  7. METOPROLOL SUCCINATE [Concomitant]
  8. SIMVASTATIN [Concomitant]
  9. ASPIRIN [Concomitant]
  10. PLAVIX [Concomitant]

REACTIONS (2)
  - OEDEMA PERIPHERAL [None]
  - PAIN IN EXTREMITY [None]
